FAERS Safety Report 4370681-X (Version None)
Quarter: 2004Q2

REPORT INFORMATION
  Report Type: 
  Country: None (occurrence: None)
  Receive Date: 20040604
  Receipt Date: 20040517
  Transmission Date: 20050107
  Serious: Yes (Life-Threatening, Hospitalization, Disabling)
  Sender: FDA-Public Use
  Company Number: 200411715JP

PATIENT
  Age: 73 Year
  Sex: Female
  Weight: 56.8 kg

DRUGS (5)
  1. TAXOTERE [Suspect]
     Indication: UTERINE CANCER
     Route: 041
     Dates: start: 20040428, end: 20040428
  2. PARAPLATIN [Suspect]
     Indication: UTERINE CANCER
     Route: 042
     Dates: start: 20040428, end: 20040428
  3. ZANTAC [Concomitant]
     Dates: start: 20030320, end: 20040428
  4. ZOFRAN [Concomitant]
     Dates: start: 20030320, end: 20040428
  5. DECADRON [Concomitant]
     Dates: start: 20030317, end: 20040428

REACTIONS (16)
  - ABDOMINAL PAIN [None]
  - ANURIA [None]
  - BLOOD POTASSIUM DECREASED [None]
  - BLOOD PRESSURE DECREASED [None]
  - BLOOD SODIUM DECREASED [None]
  - CONSTIPATION [None]
  - DIALYSIS [None]
  - DIARRHOEA [None]
  - HAEMOGLOBIN DECREASED [None]
  - INFECTION [None]
  - INFLAMMATION [None]
  - NEPHROPATHY TOXIC [None]
  - PLATELET COUNT DECREASED [None]
  - RED BLOOD CELL COUNT DECREASED [None]
  - RENAL FAILURE [None]
  - WHITE BLOOD CELL COUNT DECREASED [None]
